FAERS Safety Report 7559762-7 (Version None)
Quarter: 2011Q2

REPORT INFORMATION
  Report Type: 
  Country: None (occurrence: None)
  Receive Date: 20110621
  Receipt Date: 20110609
  Transmission Date: 20111010
  Serious: Yes (Death, Hospitalization)
  Sender: FDA-Public Use
  Company Number: JP-ACTELION-A-CH2011-50132

PATIENT
  Sex: Female
  Weight: 48 kg

DRUGS (16)
  1. CHLORPHENIRAMINE MALEATE [Concomitant]
  2. EPOPROSTENOL SODIUM [Suspect]
     Dosage: UNK
     Dates: start: 20080503, end: 20080527
  3. EPOPROSTENOL SODIUM [Suspect]
     Dosage: UNK
     Dates: start: 20081211, end: 20090114
  4. FUROSEMIDE [Concomitant]
  5. EPOPROSTENOL SODIUM [Suspect]
     Dosage: UNK
     Dates: start: 20090604, end: 20090611
  6. SILDENAFIL CITRATE [Concomitant]
  7. TRACLEER [Suspect]
     Indication: PULMONARY ARTERIAL HYPERTENSION
     Dosage: 62.5 MG, BID
     Route: 048
     Dates: start: 20071221, end: 20090611
  8. EPOPROSTENOL SODIUM [Suspect]
     Dosage: UNK
     Dates: start: 20080708, end: 20081210
  9. EPINASTINE HYDROCHLORIDE [Concomitant]
  10. TRACLEER [Suspect]
     Dosage: 31.25 MG, BID
     Route: 048
     Dates: start: 20071213, end: 20071220
  11. EPOPROSTENOL SODIUM [Suspect]
     Dosage: UNK
     Dates: start: 20080528, end: 20080707
  12. EPOPROSTENOL SODIUM [Suspect]
     Dosage: UNK
     Dates: start: 20090330, end: 20090603
  13. WARFARIN SODIUM [Concomitant]
  14. EPOPROSTENOL SODIUM [Suspect]
     Indication: PULMONARY ARTERIAL HYPERTENSION
     Dosage: UNK
     Dates: start: 20071206, end: 20080502
  15. EPOPROSTENOL SODIUM [Suspect]
     Dosage: UNK
     Dates: start: 20090115, end: 20090329
  16. OXYGEN [Concomitant]

REACTIONS (10)
  - DEVICE RELATED INFECTION [None]
  - MEDICAL DEVICE CHANGE [None]
  - HAEMATOCRIT DECREASED [None]
  - RIGHT VENTRICULAR FAILURE [None]
  - HAEMOGLOBIN DECREASED [None]
  - DEATH [None]
  - CONCOMITANT DISEASE AGGRAVATED [None]
  - MEAN CELL HAEMOGLOBIN DECREASED [None]
  - VENTRICULAR TACHYCARDIA [None]
  - ANAEMIA [None]
